FAERS Safety Report 21698376 (Version 6)
Quarter: 2023Q2

REPORT INFORMATION
  Report Type: Spontaneous
  Country: US (occurrence: US)
  Receive Date: 20221208
  Receipt Date: 20230531
  Transmission Date: 20230721
  Serious: Yes (Other)
  Sender: FDA-Public Use
  Company Number: US-SA-SAC20221207001483

PATIENT
  Age: 54 Year
  Sex: Male

DRUGS (10)
  1. ELOCTATE [Suspect]
     Active Substance: EFMOROCTOCOG ALFA
     Dosage: 1600 UNTIS/3200 UNITS
     Route: 042
  2. ELOCTATE [Suspect]
     Active Substance: EFMOROCTOCOG ALFA
     Dosage: 1600 UNTIS/3200 UNITS
     Route: 042
  3. ELOCTATE [Suspect]
     Active Substance: EFMOROCTOCOG ALFA
     Dosage: 1543 OR 3085 UNITS (+/-10%), PRN FOR MINOR/MAJOR BLEEDS
     Route: 042
  4. ELOCTATE [Suspect]
     Active Substance: EFMOROCTOCOG ALFA
     Dosage: 1543 OR 3085 UNITS (+/-10%), PRN FOR MINOR/MAJOR BLEEDS
     Route: 042
  5. ELOCTATE [Suspect]
     Active Substance: EFMOROCTOCOG ALFA
     Dosage: 1500 UNITS/3000 UNITS
     Route: 042
  6. ELOCTATE [Suspect]
     Active Substance: EFMOROCTOCOG ALFA
     Dosage: 1500 UNITS/3000 UNITS
     Route: 042
  7. ELOCTATE [Suspect]
     Active Substance: EFMOROCTOCOG ALFA
     Dosage: 3114 U
     Route: 042
     Dates: start: 20230506
  8. ELOCTATE [Suspect]
     Active Substance: EFMOROCTOCOG ALFA
     Dosage: 3114 U
     Route: 042
     Dates: start: 20230506
  9. ELOCTATE [Suspect]
     Active Substance: EFMOROCTOCOG ALFA
     Dosage: 1557 U
     Route: 042
     Dates: start: 20230507
  10. ELOCTATE [Suspect]
     Active Substance: EFMOROCTOCOG ALFA
     Dosage: 1557 U
     Route: 042
     Dates: start: 20230507

REACTIONS (6)
  - Muscle haemorrhage [Unknown]
  - Muscle haemorrhage [Not Recovered/Not Resolved]
  - Haemorrhage [Recovered/Resolved]
  - Accident [Unknown]
  - Muscle strain [Unknown]
  - Limb injury [Unknown]

NARRATIVE: CASE EVENT DATE: 20221101
